FAERS Safety Report 7210743-2 (Version None)
Quarter: 2011Q1

REPORT INFORMATION
  Report Type: 
  Country: None (occurrence: None)
  Receive Date: 20110105
  Receipt Date: 20101213
  Transmission Date: 20110831
  Serious: No
  Sender: FDA-Public Use
  Company Number: US-B.I. PHARMACEUTICALS,INC./RIDGEFIELD-2010-BP-14459BP

PATIENT
  Age: 69 Year
  Sex: Male

DRUGS (3)
  1. TOPEROL [Concomitant]
     Indication: HEART RATE IRREGULAR
  2. PRADAXA [Suspect]
     Indication: ATRIAL FIBRILLATION
     Dosage: 300 MG
     Route: 048
     Dates: start: 20101122
  3. TESTOSTERONE [Concomitant]
     Indication: BLOOD TESTOSTERONE DECREASED

REACTIONS (4)
  - ERECTILE DYSFUNCTION [None]
  - URINE ODOUR ABNORMAL [None]
  - DIARRHOEA [None]
  - EPISTAXIS [None]
